FAERS Safety Report 7507970-3 (Version None)
Quarter: 2011Q2

REPORT INFORMATION
  Report Type: 
  Country: None (occurrence: None)
  Receive Date: 20110527
  Receipt Date: 20110519
  Transmission Date: 20111010
  Serious: Yes (Hospitalization, Other)
  Sender: FDA-Public Use
  Company Number: US-JNJFOC-20110509342

PATIENT
  Sex: Male

DRUGS (4)
  1. TRICOR [Concomitant]
     Indication: BLOOD TRIGLYCERIDES INCREASED
     Dates: start: 20000101
  2. LEVAQUIN [Suspect]
     Indication: PRODUCT USED FOR UNKNOWN INDICATION
     Route: 048
  3. ACTOS [Concomitant]
     Indication: BLOOD GLUCOSE INCREASED
     Dates: start: 20000101
  4. PRAVACHOL [Concomitant]
     Indication: BLOOD CHOLESTEROL
     Dates: start: 20000101

REACTIONS (5)
  - HEADACHE [None]
  - TENDON PAIN [None]
  - WEIGHT DECREASED [None]
  - STEVENS-JOHNSON SYNDROME [None]
  - DEPRESSION [None]
